FAERS Safety Report 6200608-7 (Version None)
Quarter: 2009Q2

REPORT INFORMATION
  Report Type: 
  Country: None (occurrence: None)
  Receive Date: 20090522
  Receipt Date: 20090514
  Transmission Date: 20091009
  Serious: Yes (Other)
  Sender: FDA-Public Use
  Company Number: ES-AMGEN-UK344200

PATIENT
  Sex: Male
  Weight: 54 kg

DRUGS (14)
  1. CINACALCET [Suspect]
     Indication: HYPERPARATHYROIDISM SECONDARY
     Route: 048
     Dates: start: 20070205, end: 20070326
  2. CINACALCET [Suspect]
     Route: 048
     Dates: start: 20070326, end: 20070716
  3. CINACALCET [Suspect]
     Route: 048
     Dates: start: 20070716, end: 20071003
  4. CINACALCET [Suspect]
     Route: 048
     Dates: start: 20071003
  5. PARICALCITOL [Concomitant]
     Route: 065
     Dates: start: 20070501, end: 20080101
  6. SEVELAMER [Concomitant]
     Route: 048
     Dates: start: 20070723
  7. ACFOL [Concomitant]
     Route: 048
     Dates: start: 20070129
  8. NEORECORMON [Concomitant]
     Route: 042
     Dates: start: 20070525
  9. NOCTAMID [Concomitant]
     Route: 048
     Dates: start: 20070206
  10. POLYSTYRENE SULFONATE [Concomitant]
     Route: 048
     Dates: start: 20070725
  11. ACETYLSALICYLIC ACID [Concomitant]
     Route: 048
     Dates: start: 20070630
  12. ASCORBIC ACID [Concomitant]
     Route: 042
     Dates: start: 20070608
  13. CARNITENE [Concomitant]
     Route: 042
     Dates: start: 20050405
  14. AMIODARONE [Concomitant]
     Route: 048
     Dates: start: 20070630

REACTIONS (4)
  - CARDIAC FAILURE [None]
  - ORTHOPNOEA [None]
  - THERAPEUTIC RESPONSE DECREASED [None]
  - TREATMENT NONCOMPLIANCE [None]
